FAERS Safety Report 9834946 (Version 1)
Quarter: 2014Q1

REPORT INFORMATION
  Report Type: Spontaneous
  Country: FR (occurrence: FR)
  Receive Date: 20140122
  Receipt Date: 20140122
  Transmission Date: 20141002
  Serious: Yes (Hospitalization, Other)
  Sender: FDA-Public Use
  Company Number: FR-ACTELION-A-CH2014-93612

PATIENT
  Age: 71 Year
  Sex: Female
  Weight: 74 kg

DRUGS (7)
  1. TRACLEER [Suspect]
     Indication: PULMONARY ARTERIAL HYPERTENSION
     Dosage: 125 MG, BID
     Route: 048
     Dates: start: 20110614, end: 20130807
  2. TRACLEER [Suspect]
     Dosage: 62.5 MG, BID
     Route: 048
     Dates: start: 20110516, end: 20110613
  3. BI-TILDIEM [Concomitant]
     Dosage: 90 UNK, BID
     Dates: start: 201105
  4. LASIX [Concomitant]
     Dosage: 40 MG, BID
     Dates: start: 201001
  5. COOLMETEC [Concomitant]
     Dosage: UNK
     Dates: start: 201010
  6. PREVISCAN [Concomitant]
     Dosage: UNK
     Dates: start: 201001
  7. METFORMINE [Concomitant]
     Dosage: 850 MG, BID
     Dates: start: 201209

REACTIONS (9)
  - Drug-induced liver injury [Recovered/Resolved]
  - Jaundice [Recovered/Resolved]
  - Cell death [Recovered/Resolved]
  - Cholestasis [Recovered/Resolved]
  - Varices oesophageal [Unknown]
  - Alanine aminotransferase increased [Recovered/Resolved]
  - Aspartate aminotransferase increased [Recovered/Resolved]
  - Blood bilirubin increased [Recovered/Resolved]
  - Non-alcoholic steatohepatitis [Unknown]
